FAERS Safety Report 14813855 (Version 4)
Quarter: 2018Q3

REPORT INFORMATION
  Report Type: Spontaneous
  Country: US (occurrence: US)
  Receive Date: 20180426
  Receipt Date: 20180904
  Transmission Date: 20181010
  Serious: No
  Sender: FDA-Public Use
  Company Number: US-PFIZER INC-2018167724

PATIENT
  Age: 11 Year
  Sex: Female
  Weight: 33.11 kg

DRUGS (1)
  1. GENOTROPIN [Suspect]
     Active Substance: SOMATROPIN
     Indication: BLOOD GROWTH HORMONE
     Dosage: 1 MG, 1X/DAY (1 MG, INJECTION IN LEG, ONCE A DAY AT NIGHT)
     Dates: start: 20180410

REACTIONS (7)
  - Carbon dioxide decreased [Unknown]
  - Blood creatine decreased [Unknown]
  - Lack of injection site rotation [Unknown]
  - Injection site pain [Recovered/Resolved]
  - Anion gap increased [Unknown]
  - Device malfunction [Unknown]
  - Drug dose omission [Unknown]

NARRATIVE: CASE EVENT DATE: 20180415
